FAERS Safety Report 4470977-7 (Version None)
Quarter: 2004Q4

REPORT INFORMATION
  Report Type: 
  Country: None (occurrence: None)
  Receive Date: 20041011
  Receipt Date: 20041005
  Transmission Date: 20050328
  Serious: Yes (Disabling, Other)
  Sender: FDA-Public Use
  Company Number: AT-MERCK-0410AUT00016

PATIENT
  Age: 82 Year
  Sex: Male

DRUGS (10)
  1. FUROSEMIDE SODIUM [Concomitant]
     Route: 065
  2. LEVOTHYROXINE SODIUM [Concomitant]
     Route: 065
  3. METILDIGOXIN [Concomitant]
     Route: 065
  4. MOLSIDOMINE [Concomitant]
     Route: 065
  5. NICORANDIL [Concomitant]
     Route: 065
  6. PANTOPRAZOLE SODIUM [Concomitant]
     Route: 065
  7. VIOXX [Suspect]
     Indication: ARTHRALGIA
     Route: 048
     Dates: start: 20000522
  8. [COMPOSITION UNSPECIFIED] [Concomitant]
     Route: 065
  9. CARVEDILOL [Concomitant]
     Route: 065
  10. HYDROCHLOROTHIAZIDE AND CARVEDILOL [Concomitant]
     Route: 065

REACTIONS (1)
  - BRAIN DAMAGE [None]
